FAERS Safety Report 8166683-8 (Version None)
Quarter: 2012Q1

REPORT INFORMATION
  Report Type: 
  Country: None (occurrence: None)
  Receive Date: 20120227
  Receipt Date: 20120216
  Transmission Date: 20120608
  Serious: Yes (Death, Life-Threatening, Other)
  Sender: FDA-Public Use
  Company Number: JP-CELGENEUS-087-50794-12011876

PATIENT
  Sex: Female

DRUGS (41)
  1. CARVEDILOL [Concomitant]
     Route: 065
     Dates: end: 20111227
  2. VIDAZA [Suspect]
     Dosage: 100 MILLIGRAM
     Route: 058
     Dates: start: 20111220, end: 20111226
  3. LIPITOR [Concomitant]
     Route: 065
     Dates: end: 20111029
  4. AMLODIPINE BESYLATE [Concomitant]
     Route: 065
     Dates: end: 20111227
  5. CEFEPIME DIHYDROCHLORIDE HYDRATE [Concomitant]
     Route: 065
     Dates: start: 20111210, end: 20111222
  6. CEFEPIME DIHYDROCHLORIDE HYDRATE [Concomitant]
     Route: 065
     Dates: start: 20111224, end: 20111225
  7. VANCOMYCIN HYDROCHLORIDE [Concomitant]
     Route: 065
     Dates: start: 20111228, end: 20111228
  8. PENTAZOCINE LACTATE [Concomitant]
     Route: 065
     Dates: start: 20120103, end: 20120103
  9. VIDAZA [Suspect]
     Route: 065
     Dates: start: 20111118, end: 20111124
  10. TANATRIL [Concomitant]
     Route: 065
     Dates: end: 20111227
  11. GAMOFA [Concomitant]
     Route: 065
  12. FLUCONAZON [Concomitant]
     Route: 065
     Dates: start: 20111019, end: 20111226
  13. KYTRIL [Concomitant]
     Route: 065
     Dates: start: 20111019, end: 20111025
  14. KYTRIL [Concomitant]
     Route: 065
     Dates: start: 20111118, end: 20111124
  15. SENNARIDE [Concomitant]
     Route: 065
     Dates: start: 20111022
  16. LANSOPRAZOLE [Concomitant]
     Route: 065
     Dates: start: 20111030, end: 20120111
  17. ALBUMIN TANNATE [Concomitant]
     Route: 065
     Dates: start: 20111102, end: 20111104
  18. VANCOMYCIN HYDROCHLORIDE [Concomitant]
     Route: 065
     Dates: start: 20120104, end: 20120104
  19. TEICOPLANIN [Concomitant]
     Route: 065
     Dates: start: 20120105, end: 20120107
  20. LASIX [Concomitant]
     Route: 065
     Dates: start: 20120105, end: 20120105
  21. LASIX [Concomitant]
     Route: 065
     Dates: start: 20120110, end: 20120110
  22. ZOSYN [Concomitant]
     Route: 065
     Dates: start: 20111227, end: 20120107
  23. NONTHRON [Concomitant]
     Route: 065
     Dates: start: 20120105
  24. ALLOPURINOL [Concomitant]
     Route: 065
     Dates: start: 20111019, end: 20111027
  25. KYTRIL [Concomitant]
     Route: 065
     Dates: start: 20111220, end: 20111226
  26. TEICOPLANIN [Concomitant]
     Route: 065
     Dates: start: 20120108, end: 20120110
  27. SELBEX [Concomitant]
     Route: 065
     Dates: end: 20120111
  28. VANCOMYCIN HYDROCHLORIDE [Concomitant]
     Route: 065
     Dates: start: 20111226, end: 20111226
  29. LASIX [Concomitant]
     Route: 065
     Dates: start: 20120112, end: 20120112
  30. ARGAMATE [Concomitant]
     Route: 065
     Dates: start: 20111218, end: 20111220
  31. EPOGIN [Concomitant]
     Route: 050
     Dates: start: 20120105, end: 20120105
  32. SEDEKOPAN [Concomitant]
     Route: 065
     Dates: end: 20120111
  33. COTRIM [Concomitant]
     Route: 065
     Dates: start: 20111019
  34. MAGMITT [Concomitant]
     Route: 065
     Dates: start: 20111030, end: 20111226
  35. VANCOMYCIN HYDROCHLORIDE [Concomitant]
     Route: 065
     Dates: start: 20111231, end: 20111231
  36. VIDAZA [Suspect]
     Indication: MYELODYSPLASTIC SYNDROME
     Route: 065
     Dates: start: 20111019, end: 20111025
  37. CILOSTAZOL [Concomitant]
     Route: 065
     Dates: end: 20120111
  38. ASPIRIN [Concomitant]
     Route: 065
     Dates: end: 20120111
  39. MAXIPIME [Concomitant]
     Route: 065
     Dates: start: 20111207, end: 20111209
  40. CEFOCEF [Concomitant]
     Route: 065
     Dates: start: 20111226, end: 20111227
  41. EPOGIN [Concomitant]
     Route: 050
     Dates: start: 20120111, end: 20120111

REACTIONS (11)
  - HYPERPHOSPHATAEMIA [None]
  - THROMBOCYTOPENIA [None]
  - RENAL FAILURE [None]
  - ANAEMIA [None]
  - FEBRILE NEUTROPENIA [None]
  - HYPOCALCAEMIA [None]
  - HYPERURICAEMIA [None]
  - FEMUR FRACTURE [None]
  - SEPTIC SHOCK [None]
  - SHOCK [None]
  - NEUTROPHIL COUNT DECREASED [None]
